FAERS Safety Report 17984486 (Version 1)
Quarter: 2020Q3

REPORT INFORMATION
  Report Type: Spontaneous
  Country: ES (occurrence: ES)
  Receive Date: 20200706
  Receipt Date: 20200706
  Transmission Date: 20201103
  Serious: Yes (Hospitalization, Other)
  Sender: FDA-Public Use
  Company Number: ES-ELI_LILLY_AND_COMPANY-ES202006011596

PATIENT
  Age: 47 Year
  Sex: Male

DRUGS (3)
  1. TIZANIDINE. [Interacting]
     Active Substance: TIZANIDINE
     Indication: PRODUCT USED FOR UNKNOWN INDICATION
     Dosage: 6 MG, BID
     Route: 065
     Dates: start: 2008
  2. CIPROFLOXACIN. [Interacting]
     Active Substance: CIPROFLOXACIN
     Indication: URINARY TRACT INFECTION
     Dosage: 500 MG, BID
     Route: 048
  3. DULOXETINE HYDROCHLORIDE. [Suspect]
     Active Substance: DULOXETINE HYDROCHLORIDE
     Indication: PRODUCT USED FOR UNKNOWN INDICATION
     Dosage: 60 MG, DAILY
     Route: 065
     Dates: start: 201610

REACTIONS (8)
  - Abdominal pain [Unknown]
  - Somnolence [Unknown]
  - Autonomic dysreflexia [Unknown]
  - Overdose [Unknown]
  - Disorientation [Unknown]
  - Amnesia [Unknown]
  - Constipation [Unknown]
  - Drug interaction [Unknown]

NARRATIVE: CASE EVENT DATE: 201707
